FAERS Safety Report 7609358-3 (Version None)
Quarter: 2011Q3

REPORT INFORMATION
  Report Type: 
  Country: None (occurrence: None)
  Receive Date: 20110713
  Receipt Date: 20110713
  Transmission Date: 20111222
  Serious: Yes (Other)
  Sender: FDA-Public Use
  Company Number: None

PATIENT
  Age: 62 Year
  Sex: Female
  Weight: 70 kg

DRUGS (1)
  1. LYRICA [Suspect]
     Indication: FACIAL NEURALGIA
     Dosage: 300 MG 2 TIMES PER DAY BY MOUTH
     Route: 048

REACTIONS (4)
  - HYPERHIDROSIS [None]
  - NAUSEA [None]
  - HEADACHE [None]
  - INSOMNIA [None]
